FAERS Safety Report 24551627 (Version 2)
Quarter: 2024Q4

REPORT INFORMATION
  Report Type: Report from Study
  Country: US (occurrence: US)
  Receive Date: 20241026
  Receipt Date: 20241108
  Transmission Date: 20250114
  Serious: Yes (Hospitalization, Other)
  Sender: ABBVIE
  Company Number: US-ABBVIE-5975669

PATIENT
  Age: 68 Year
  Sex: Female
  Weight: 95 kg

DRUGS (1)
  1. SKYRIZI [Suspect]
     Active Substance: RISANKIZUMAB-RZAA
     Indication: Crohn^s disease
     Route: 058
     Dates: start: 202402, end: 202408

REACTIONS (7)
  - Wound sepsis [Recovered/Resolved]
  - White blood cell count increased [Recovered/Resolved]
  - Atrial flutter [Not Recovered/Not Resolved]
  - Immunodeficiency [Unknown]
  - Atrial fibrillation [Not Recovered/Not Resolved]
  - Impaired healing [Recovered/Resolved]
  - Limb injury [Recovered/Resolved]

NARRATIVE: CASE EVENT DATE: 20240101
